FAERS Safety Report 24373368 (Version 5)
Quarter: 2025Q2

REPORT INFORMATION
  Report Type: Report from Study
  Country: CA (occurrence: CA)
  Receive Date: 20240927
  Receipt Date: 20250407
  Transmission Date: 20250717
  Serious: Yes (Other)
  Sender: SANDOZ
  Company Number: CA-SANDOZ-SDZ2024CA048785

PATIENT
  Age: 51 Year
  Sex: Female

DRUGS (2)
  1. HYRIMOZ [Suspect]
     Active Substance: ADALIMUMAB-ADAZ
     Indication: Crohn^s disease
     Dosage: NULL;EVERY TWO WEEKS ( INJECTION IN PRE-FILLED SYRINGE)
     Route: 058
     Dates: start: 20240318
  2. HYRIMOZ [Suspect]
     Active Substance: ADALIMUMAB-ADAZ
     Dosage: 40 MG;WEEKLY
     Route: 058
     Dates: start: 20240318, end: 202501

REACTIONS (16)
  - Colitis ulcerative [Unknown]
  - General physical health deterioration [Unknown]
  - Feeling hot [Recovered/Resolved]
  - Dysplasia [Unknown]
  - Faeces soft [Unknown]
  - Anal fissure [Recovered/Resolved]
  - Dizziness [Recovered/Resolved]
  - Hypoaesthesia [Recovered/Resolved]
  - Headache [Unknown]
  - Nausea [Recovered/Resolved]
  - Abdominal pain [Unknown]
  - Gastroenteritis [Unknown]
  - Infection [Unknown]
  - Therapeutic response shortened [Unknown]
  - Therapy cessation [Unknown]
  - Off label use [Unknown]

NARRATIVE: CASE EVENT DATE: 20250101
